FAERS Safety Report 7670595-3 (Version None)
Quarter: 2011Q3

REPORT INFORMATION
  Report Type: 
  Country: None (occurrence: None)
  Receive Date: 20110809
  Receipt Date: 20110802
  Transmission Date: 20111222
  Serious: No
  Sender: FDA-Public Use
  Company Number: US-BIOGENIDEC-2011BI029016

PATIENT
  Sex: Female

DRUGS (4)
  1. AVONEX [Concomitant]
     Indication: MULTIPLE SCLEROSIS
     Route: 030
     Dates: start: 19970601
  2. TYSABRI [Suspect]
     Indication: MULTIPLE SCLEROSIS
     Route: 042
     Dates: start: 20080822
  3. TYSABRI [Suspect]
     Route: 042
     Dates: start: 20070319, end: 20071224
  4. TYSABRI [Suspect]
     Route: 042
     Dates: start: 20060701, end: 20061001

REACTIONS (9)
  - VISUAL IMPAIRMENT [None]
  - NASOPHARYNGITIS [None]
  - MEMORY IMPAIRMENT [None]
  - ROSAI-DORFMAN SYNDROME [None]
  - VISION BLURRED [None]
  - MUSCLE SPASMS [None]
  - NECK MASS [None]
  - LACRIMATION INCREASED [None]
  - SINUSITIS [None]
